FAERS Safety Report 6503177-7 (Version None)
Quarter: 2009Q4

REPORT INFORMATION
  Report Type: 
  Country: None (occurrence: None)
  Receive Date: 20091217
  Receipt Date: 20091208
  Transmission Date: 20100525
  Serious: Yes (Hospitalization)
  Sender: FDA-Public Use
  Company Number: FR-JNJFOC-20091202900

PATIENT
  Sex: Male

DRUGS (14)
  1. PREZISTA [Suspect]
     Indication: HIV INFECTION
     Route: 048
  2. RITONAVIR [Suspect]
     Indication: HIV INFECTION
     Route: 048
  3. TRUVADA [Suspect]
     Indication: HIV INFECTION
     Route: 048
  4. ANSATIPINE [Suspect]
     Indication: MYCOBACTERIAL INFECTION
  5. ANSATIPINE [Suspect]
  6. ANSATIPINE [Suspect]
  7. ANSATIPINE [Suspect]
  8. IZILOX [Concomitant]
  9. ZECLAR [Concomitant]
  10. MYAMBUTOL [Concomitant]
  11. CIPROFLOXACIN HCL [Concomitant]
  12. AMIKLIN [Concomitant]
  13. BACTRIM [Concomitant]
  14. TRIFLUCAN [Concomitant]

REACTIONS (1)
  - NEUTROPENIA [None]
